FAERS Safety Report 21308483 (Version 1)
Quarter: 2022Q3

REPORT INFORMATION
  Report Type: Spontaneous
  Country: US (occurrence: None)
  Receive Date: 20220908
  Receipt Date: 20220908
  Transmission Date: 20221027
  Serious: Yes (Other)
  Sender: FDA-Public Use
  Company Number: None

PATIENT
  Age: 33 Year
  Sex: Female
  Weight: 63 kg

DRUGS (1)
  1. PAXLOVID [Suspect]
     Active Substance: NIRMATRELVIR\RITONAVIR
     Indication: COVID-19
     Dates: start: 20220823, end: 20220828

REACTIONS (4)
  - Fatigue [None]
  - Pulmonary congestion [None]
  - Cough [None]
  - COVID-19 [None]

NARRATIVE: CASE EVENT DATE: 20220830
